FAERS Safety Report 12772872 (Version 1)
Quarter: 2016Q3

REPORT INFORMATION
  Report Type: Report from Study
  Country: DO (occurrence: DO)
  Receive Date: 20160922
  Receipt Date: 20160922
  Transmission Date: 20161109
  Serious: Yes (Other)
  Sender: FDA-Public Use
  Company Number: DO-ABBVIE-12P-CLI-0972639-00

PATIENT
  Sex: Female

DRUGS (3)
  1. ATAZANAVIR [Concomitant]
     Active Substance: ATAZANAVIR
     Indication: EXPOSURE VIA BODY FLUID
     Route: 050
  2. RITONAVIR SOFT GELATIN CAPSULES [Suspect]
     Active Substance: RITONAVIR
     Indication: EXPOSURE VIA BODY FLUID
     Route: 050
  3. EMTRICITABINE W/TENOFOVIR DISOPROXIL FUMARATE [Concomitant]
     Active Substance: EMTRICITABINE\TENOFOVIR DISOPROXIL
     Indication: EXPOSURE VIA BODY FLUID
     Route: 050

REACTIONS (3)
  - Pregnancy on contraceptive [Unknown]
  - Exposure via body fluid [Unknown]
  - Exposure during pregnancy [Unknown]
